FAERS Safety Report 18936318 (Version 1)
Quarter: 2021Q1

REPORT INFORMATION
  Report Type: Spontaneous
  Country: US (occurrence: US)
  Receive Date: 20210224
  Receipt Date: 20210224
  Transmission Date: 20210420
  Serious: No
  Sender: FDA-Public Use
  Company Number: US-TERSERA THERAPEUTICS LLC-2020TRS002827

PATIENT

DRUGS (2)
  1. MORPHINE [Suspect]
     Active Substance: MORPHINE
     Indication: POST LAMINECTOMY SYNDROME
     Dosage: 9.983 MG, QD (DOSE: 0.500 MG TO MAXIMUM DOSE: 12.359 MG(+ 23.8 %))
     Route: 037
  2. PRIALT [Suspect]
     Active Substance: ZICONOTIDE ACETATE
     Indication: POST LAMINECTOMY SYNDROME
     Dosage: 1.089 MCG, QD (3.0 MCG/ML) (DOSE: 0.0545 MCG TO MAXIMUM DOSE: 1.3482 MCG)
     Route: 037

REACTIONS (3)
  - Therapy interrupted [Unknown]
  - Device malfunction [Unknown]
  - Off label use [Unknown]

NARRATIVE: CASE EVENT DATE: 20200824
